FAERS Safety Report 7611266-9 (Version None)
Quarter: 2011Q3

REPORT INFORMATION
  Report Type: 
  Country: None (occurrence: None)
  Receive Date: 20110715
  Receipt Date: 20110712
  Transmission Date: 20111222
  Serious: Yes (Hospitalization)
  Sender: FDA-Public Use
  Company Number: GB-PFIZER INC-2010175283

PATIENT
  Age: 71 Year
  Sex: Male

DRUGS (6)
  1. ENOXAPARIN [Concomitant]
     Dosage: 40 MG, 1X/DAY
     Route: 058
     Dates: start: 20101203
  2. SUNITINIB MALATE [Suspect]
     Indication: BLADDER CANCER
     Dosage: 25 MG, 1X/DAY
     Route: 048
     Dates: start: 20100929
  3. CISPLATIN [Suspect]
     Indication: BLADDER CANCER
     Dosage: UNK
     Route: 042
     Dates: start: 20100929
  4. GEMCITABINE [Suspect]
     Indication: BLADDER CANCER
     Dosage: UNK
     Route: 042
     Dates: start: 20100929
  5. OMEPRAZOLE [Concomitant]
     Dosage: 20 MG, 1X/DAY
     Route: 048
  6. TAMSULOSIN [Concomitant]
     Dosage: 400 UG, 1X/DAY
     Route: 048

REACTIONS (1)
  - NEUTROPENIC SEPSIS [None]
